FAERS Safety Report 8286212-8 (Version None)
Quarter: 2012Q2

REPORT INFORMATION
  Report Type: 
  Country: None (occurrence: None)
  Receive Date: 20120416
  Receipt Date: 20120413
  Transmission Date: 20120825
  Serious: No
  Sender: FDA-Public Use
  Company Number: US-PFIZER INC-2012092903

PATIENT
  Sex: Female
  Weight: 68.027 kg

DRUGS (5)
  1. CHANTIX [Suspect]
     Dosage: 0.5 MG, DAILY
     Dates: start: 20120324, end: 20120101
  2. CHANTIX [Suspect]
     Dosage: UNK, 2X/DAY
     Dates: start: 20120101, end: 20120401
  3. ATORVASTATIN CALCIUM [Concomitant]
     Indication: BLOOD CHOLESTEROL INCREASED
     Dosage: 40 MG,DAILY
  4. CHANTIX [Suspect]
     Indication: SMOKING CESSATION THERAPY
     Dosage: UNK
  5. CHANTIX [Suspect]
     Dosage: UNK, 1X/DAY
     Dates: start: 20120401

REACTIONS (3)
  - POLYDIPSIA [None]
  - HYPERPHAGIA [None]
  - NAUSEA [None]
